FAERS Safety Report 10438445 (Version 2)
Quarter: 2014Q4

REPORT INFORMATION
  Report Type: Spontaneous
  Country: JP (occurrence: JP)
  Receive Date: 20140908
  Receipt Date: 20141009
  Transmission Date: 20150528
  Serious: Yes (Hospitalization)
  Sender: FDA-Public Use
  Company Number: JP-GLAXOSMITHKLINE-B1022760A

PATIENT
  Age: 19 Year
  Sex: Female

DRUGS (1)
  1. LAMOTRIGINE. [Suspect]
     Active Substance: LAMOTRIGINE
     Indication: BIPOLAR DISORDER
     Route: 048
     Dates: start: 20140312, end: 20140313

REACTIONS (4)
  - Pyrexia [Unknown]
  - Rash erythematous [Recovering/Resolving]
  - Measles antibody positive [Unknown]
  - Rash generalised [Unknown]

NARRATIVE: CASE EVENT DATE: 20140314
